FAERS Safety Report 6809028-5 (Version None)
Quarter: 2010Q2

REPORT INFORMATION
  Report Type: 
  Country: None (occurrence: None)
  Receive Date: 20100630
  Receipt Date: 20100622
  Transmission Date: 20101027
  Serious: Yes (Hospitalization)
  Sender: FDA-Public Use
  Company Number: US-BIOGENIDEC-2010BI020942

PATIENT
  Age: 53 Year
  Sex: Female
  Weight: 66 kg

DRUGS (7)
  1. TYSABRI [Suspect]
     Indication: MULTIPLE SCLEROSIS
     Route: 042
     Dates: start: 20081104
  2. PROVIGIL [Concomitant]
     Indication: FATIGUE
  3. CYMBALTA [Concomitant]
     Indication: DEPRESSION
  4. VITAMIN D3 [Concomitant]
     Indication: SUPPLEMENTATION THERAPY
  5. COUMADIN [Concomitant]
     Indication: ANTICOAGULANT THERAPY
  6. COUMADIN [Concomitant]
  7. BACLOFEN [Concomitant]
     Indication: MUSCLE SPASTICITY

REACTIONS (2)
  - ESCHERICHIA URINARY TRACT INFECTION [None]
  - KLEBSIELLA INFECTION [None]
